FAERS Safety Report 6145311-7 (Version None)
Quarter: 2009Q2

REPORT INFORMATION
  Report Type: 
  Country: None (occurrence: None)
  Receive Date: 20090406
  Receipt Date: 20090402
  Transmission Date: 20091009
  Serious: Yes (Death)
  Sender: FDA-Public Use
  Company Number: ZW-B.I. PHARMACEUTICALS,INC./RIDGEFIELD-2009-BP-04076BP

PATIENT
  Age: 23 Year
  Sex: Female

DRUGS (1)
  1. VIRAMUNE [Suspect]
     Dates: start: 20080927

REACTIONS (1)
  - DEATH [None]
